FAERS Safety Report 12620230 (Version 2)
Quarter: 2016Q3

REPORT INFORMATION
  Report Type: Spontaneous
  Country: GB (occurrence: GB)
  Receive Date: 20160803
  Receipt Date: 20160902
  Transmission Date: 20161109
  Serious: Yes (Hospitalization, Other)
  Sender: FDA-Public Use
  Company Number: GB-TEVA-679684ACC

PATIENT
  Age: 47 Year
  Sex: Female

DRUGS (10)
  1. CLOTRIMAZOLE. [Concomitant]
     Active Substance: CLOTRIMAZOLE
     Dosage: 2 DOSAGE FORMS DAILY;
     Route: 061
  2. NYSTATIN. [Concomitant]
     Active Substance: NYSTATIN
     Dosage: 4 ML DAILY; STRENGTH: 100,000UNITS/ML
     Route: 048
  3. OMEPRAZOLE. [Concomitant]
     Active Substance: OMEPRAZOLE
     Dosage: 20 MILLIGRAM DAILY;
     Route: 048
  4. LANSOPRAZOLE. [Suspect]
     Active Substance: LANSOPRAZOLE
     Route: 048
  5. CHLORHEXIDINE GLUCONATE SOLUTION [Concomitant]
     Active Substance: CHLORHEXIDINE GLUCONATE
     Dosage: SOAP SUBSTITUTE
     Route: 061
  6. PARACETAMOL [Concomitant]
     Active Substance: ACETAMINOPHEN
     Dosage: 500MG-1G EVERY 4-6HOURS
     Route: 048
  7. VENLAFAXINE [Suspect]
     Active Substance: VENLAFAXINE HYDROCHLORIDE
     Dosage: 75 MILLIGRAM DAILY; REDUCED TO 37.5MG.
     Route: 048
  8. FUROSEMIDE. [Suspect]
     Active Substance: FUROSEMIDE
     Dosage: 160 MILLIGRAM DAILY;
     Route: 048
  9. CETIRIZINE [Concomitant]
     Active Substance: CETIRIZINE HYDROCHLORIDE
     Dosage: 10 MILLIGRAM DAILY;
     Route: 048
  10. DIPROBASE [Concomitant]
     Active Substance: CHLOROCRESOL
     Route: 061

REACTIONS (5)
  - Diarrhoea [Recovered/Resolved]
  - Acute kidney injury [Unknown]
  - Dyspnoea [Unknown]
  - Loss of consciousness [Unknown]
  - Chest pain [Unknown]
